FAERS Safety Report 6483200-9 (Version None)
Quarter: 2009Q4

REPORT INFORMATION
  Report Type: 
  Country: None (occurrence: None)
  Receive Date: 20091209
  Receipt Date: 20090422
  Transmission Date: 20100525
  Serious: No
  Sender: FDA-Public Use
  Company Number: US-AMGEN-KDL343948

PATIENT
  Sex: Female

DRUGS (1)
  1. ENBREL [Suspect]
     Indication: PSORIASIS
     Route: 058
     Dates: start: 20050927

REACTIONS (3)
  - BLOOD GLUCOSE INCREASED [None]
  - SLEEP APNOEA SYNDROME [None]
  - WEIGHT INCREASED [None]
